FAERS Safety Report 21770322 (Version 1)
Quarter: 2022Q4

REPORT INFORMATION
  Report Type: Spontaneous
  Country: NL (occurrence: NL)
  Receive Date: 20221223
  Receipt Date: 20221223
  Transmission Date: 20230113
  Serious: Yes (Other)
  Sender: FDA-Public Use
  Company Number: NL-LRB-00854763

PATIENT
  Sex: Female
  Weight: 55 kg

DRUGS (2)
  1. ALENDRONIC ACID [Suspect]
     Active Substance: ALENDRONIC ACID
     Indication: Osteoporosis
     Dosage: 70 MILLIGRAM, EVERY WEEK (1 TIME PER WEEK)
     Route: 065
     Dates: start: 20220711
  2. RABEPRAZOLE [Concomitant]
     Active Substance: RABEPRAZOLE
     Indication: Product used for unknown indication
     Dosage: 10 MILLIGRAM (GASTRO-RESISTANT TABLET, 10 MG (MILLIGRAM)
     Route: 065

REACTIONS (1)
  - Eye haemorrhage [Recovered/Resolved]
